FAERS Safety Report 8853277 (Version 1)
Quarter: 2012Q4

REPORT INFORMATION
  Report Type: 
  Country: CY (occurrence: CY)
  Receive Date: 20121022
  Receipt Date: 20121022
  Transmission Date: 20130627
  Serious: Yes (Other)
  Sender: FDA-Public Use
  Company Number: CY-ROCHE-CID000000002200996

PATIENT
  Age: 18 Year
  Sex: Male

DRUGS (1)
  1. ROACCUTANE [Suspect]
     Indication: ACNE
     Route: 065

REACTIONS (5)
  - Phobia [Not Recovered/Not Resolved]
  - Psychiatric symptom [Not Recovered/Not Resolved]
  - Palpitations [Not Recovered/Not Resolved]
  - Arthralgia [Not Recovered/Not Resolved]
  - Fatigue [Not Recovered/Not Resolved]
